FAERS Safety Report 18276815 (Version 1)
Quarter: 2020Q3

REPORT INFORMATION
  Report Type: Other
  Country: CA (occurrence: CA)
  Receive Date: 20200917
  Receipt Date: 20200917
  Transmission Date: 20201103
  Serious: Yes (Life-Threatening, Other)
  Sender: FDA-Public Use
  Company Number: CA-ROCHE-2675569

PATIENT

DRUGS (5)
  1. NIVOLUMAB [Suspect]
     Active Substance: NIVOLUMAB
     Indication: PRODUCT USED FOR UNKNOWN INDICATION
     Route: 065
  2. IPILIMUMAB [Suspect]
     Active Substance: IPILIMUMAB
     Indication: PRODUCT USED FOR UNKNOWN INDICATION
     Route: 065
  3. PEMBROLIZUMAB. [Suspect]
     Active Substance: PEMBROLIZUMAB
     Indication: PRODUCT USED FOR UNKNOWN INDICATION
     Route: 065
  4. ATEZOLIZUMAB. [Suspect]
     Active Substance: ATEZOLIZUMAB
     Indication: PRODUCT USED FOR UNKNOWN INDICATION
     Route: 065
  5. DURVALUMAB. [Suspect]
     Active Substance: DURVALUMAB
     Indication: PRODUCT USED FOR UNKNOWN INDICATION
     Route: 065

REACTIONS (27)
  - Enthesopathy [Unknown]
  - Osteoarthritis [Unknown]
  - Arthralgia [Unknown]
  - Raynaud^s phenomenon [Unknown]
  - Colitis [Unknown]
  - Endocrine disorder [Unknown]
  - Hepatitis [Unknown]
  - Vasculitis [Unknown]
  - Rash [Unknown]
  - Blood disorder [Unknown]
  - Psoriatic arthropathy [Unknown]
  - Polymyalgia rheumatica [Unknown]
  - Sjogren^s syndrome [Unknown]
  - Myalgia [Unknown]
  - Myocarditis [Unknown]
  - Tendonitis [Unknown]
  - Renal disorder [Unknown]
  - Tenosynovitis [Unknown]
  - Diarrhoea [Unknown]
  - Myositis [Unknown]
  - Sarcoidosis [Unknown]
  - Polyarthritis [Unknown]
  - Oligoarthritis [Unknown]
  - Periarthritis [Unknown]
  - Psoriasis [Unknown]
  - Pneumonitis [Unknown]
  - Eye disorder [Unknown]
